FAERS Safety Report 9565333 (Version 3)
Quarter: 2013Q4

REPORT INFORMATION
  Report Type: Report from Study
  Country: BE (occurrence: BE)
  Receive Date: 20130930
  Receipt Date: 20131125
  Transmission Date: 20140711
  Serious: Yes (Other)
  Sender: FDA-Public Use
  Company Number: BE-AMGEN-BELNI2013068085

PATIENT
  Age: 72 Year
  Sex: Male

DRUGS (9)
  1. XGEVA [Suspect]
     Indication: METASTASES TO BONE
     Dosage: 120 MG, Q4WK
     Route: 058
     Dates: start: 20120913, end: 201302
  2. DENOSUMAB [Suspect]
     Indication: PRODUCT USED FOR UNKNOWN INDICATION
     Route: 065
  3. PROMAGNOR [Concomitant]
     Dosage: UNK UNK, QD
     Dates: start: 201209, end: 201212
  4. IMODIUM [Concomitant]
     Dosage: 2 MG, AS NECESSARY
     Dates: start: 201209, end: 201212
  5. PANTOMED                           /00178901/ [Concomitant]
     Dosage: 20 MG, QD
     Dates: start: 20120302, end: 2013
  6. AMLOR [Concomitant]
     Dosage: 10 MG, QD
     Dates: start: 20120302, end: 201211
  7. EMCONCOR [Concomitant]
     Dosage: 5 MG, QD
     Dates: start: 2012, end: 2013
  8. LIPITOR [Concomitant]
     Dosage: 10 MG, QD
     Dates: start: 201203, end: 2013
  9. SUTENT [Concomitant]
     Dosage: 37.5 MG, QD
     Dates: start: 20101218, end: 20121210

REACTIONS (1)
  - Osteonecrosis of jaw [Not Recovered/Not Resolved]
